FAERS Safety Report 7883659-6 (Version None)
Quarter: 2011Q4

REPORT INFORMATION
  Report Type: 
  Country: None (occurrence: None)
  Receive Date: 20111102
  Receipt Date: 20111028
  Transmission Date: 20120403
  Serious: Yes (Other)
  Sender: FDA-Public Use
  Company Number: BR-PFIZER INC-2011265230

PATIENT
  Age: 49 Year
  Sex: Male
  Weight: 98 kg

DRUGS (3)
  1. VARENICLINE TARTRATE [Suspect]
     Indication: SMOKING CESSATION THERAPY
     Dosage: UNK
     Route: 048
     Dates: start: 20111004, end: 20111001
  2. VARENICLINE TARTRATE [Suspect]
     Dosage: 1 MG EVERY 12 HOURS
     Route: 048
     Dates: start: 20111001, end: 20111001
  3. VARENICLINE TARTRATE [Suspect]
     Dosage: 1 TABLET STRENGTH 1 MG PER DAY
     Dates: start: 20111001

REACTIONS (8)
  - NERVOUSNESS [None]
  - ANXIETY [None]
  - ABNORMAL DREAMS [None]
  - BLOOD CHOLESTEROL INCREASED [None]
  - MUSCLE SPASMS [None]
  - MUSCULOSKELETAL STIFFNESS [None]
  - BLOOD TRIGLYCERIDES INCREASED [None]
  - INSOMNIA [None]
